FAERS Safety Report 9415642 (Version 1)
Quarter: 2013Q3

REPORT INFORMATION
  Report Type: Spontaneous
  Country: DE (occurrence: DE)
  Receive Date: 20130723
  Receipt Date: 20130723
  Transmission Date: 20140515
  Serious: Yes (Disabling)
  Sender: FDA-Public Use
  Company Number: DE-TEVA-419338GER

PATIENT
  Age: 39 Year
  Sex: Male
  Weight: 88 kg

DRUGS (1)
  1. DOXY-M [Suspect]
     Indication: ACUTE SINUSITIS
     Dosage: 200 MILLIGRAM DAILY; 2 TABLETS
     Route: 048
     Dates: start: 20130519, end: 20130522

REACTIONS (2)
  - Dysgeusia [Not Recovered/Not Resolved]
  - Parosmia [Not Recovered/Not Resolved]
